FAERS Safety Report 19178608 (Version 1)
Quarter: 2021Q2

REPORT INFORMATION
  Report Type: Spontaneous
  Country: IT (occurrence: IT)
  Receive Date: 20210426
  Receipt Date: 20210426
  Transmission Date: 20210717
  Serious: Yes (Other)
  Sender: FDA-Public Use
  Company Number: IT-ADVANZ PHARMA-202104002915

PATIENT

DRUGS (2)
  1. ALFUZOSIN [Suspect]
     Active Substance: ALFUZOSIN
     Dosage: PROLONGED?RELEASE TABLET
     Route: 065
  2. LACTASE [Concomitant]
     Active Substance: LACTASE
     Dosage: UNK

REACTIONS (4)
  - Feeling hot [Unknown]
  - Renal impairment [Unknown]
  - Urinary retention [Unknown]
  - Abdominal distension [Unknown]
